FAERS Safety Report 22115473 (Version 1)
Quarter: 2023Q1

REPORT INFORMATION
  Report Type: Spontaneous
  Country: US (occurrence: None)
  Receive Date: 20230318
  Receipt Date: 20230318
  Transmission Date: 20230418
  Serious: Yes (Other)
  Sender: FDA-Public Use
  Company Number: None

PATIENT
  Sex: Female

DRUGS (1)
  1. SKYRIZI [Suspect]
     Active Substance: RISANKIZUMAB-RZAA
     Indication: Crohn^s disease
     Dosage: 600MG/10ML  INTRAVENOUS??RX1: INFUSE 600 MG INTRAVENOUSLY ON WEEKS 0, 4, AND 8
     Route: 042
     Dates: start: 20230127

REACTIONS (1)
  - Surgery [None]
